FAERS Safety Report 8150462-1 (Version None)
Quarter: 2012Q1

REPORT INFORMATION
  Report Type: 
  Country: None (occurrence: None)
  Receive Date: 20120220
  Receipt Date: 20120210
  Transmission Date: 20120608
  Serious: Yes (Hospitalization, Other)
  Sender: FDA-Public Use
  Company Number: AT-ABBOTT-09P-009-0596019-00

PATIENT
  Age: 63 Year
  Sex: Female
  Weight: 91 kg

DRUGS (2)
  1. ZEMPLAR [Suspect]
     Indication: HYPERPARATHYROIDISM SECONDARY
     Dosage: 5UG/MIL 3 TIMES A WEEK
     Dates: start: 20090615, end: 20091023
  2. ZEMPLAR [Suspect]
     Indication: RENAL FAILURE CHRONIC
     Dosage: 10UG/ML 3 TIMES A WEEK
     Dates: start: 20090901

REACTIONS (3)
  - HAEMOPTYSIS [None]
  - SUPRAVENTRICULAR TACHYCARDIA [None]
  - METASTASES TO LUNG [None]
